APPROVED DRUG PRODUCT: TEMAZEPAM
Active Ingredient: TEMAZEPAM
Strength: 30MG
Dosage Form/Route: CAPSULE;ORAL
Application: A071428 | Product #001 | TE Code: AB
Applicant: CHARTWELL RX SCIENCES LLC
Approved: Jan 12, 1988 | RLD: No | RS: No | Type: RX